FAERS Safety Report 8071167-1 (Version None)
Quarter: 2012Q1

REPORT INFORMATION
  Report Type: 
  Country: None (occurrence: None)
  Receive Date: 20120125
  Receipt Date: 20120117
  Transmission Date: 20120608
  Serious: Yes (Hospitalization)
  Sender: FDA-Public Use
  Company Number: FR-ASTRAZENECA-2012SE04099

PATIENT
  Age: 65 Year
  Sex: Female

DRUGS (10)
  1. ARIMIDEX [Suspect]
     Indication: BREAST CANCER
     Route: 048
     Dates: end: 20111114
  2. LASIX [Suspect]
     Indication: CARDIAC FAILURE
     Dates: start: 20111001, end: 20111114
  3. RAMIPRIL [Suspect]
     Indication: CARDIAC FAILURE
     Route: 048
     Dates: start: 20110920, end: 20111114
  4. LEVOTHYROXINE SODIUM [Concomitant]
  5. PREDNISOLONE [Concomitant]
  6. NEXIUM [Concomitant]
  7. DIFFU K [Concomitant]
  8. ACETAMINOPHEN [Concomitant]
  9. CORTICOSTEROID [Concomitant]
     Indication: ADRENAL INSUFFICIENCY
     Dates: start: 20110701
  10. MUTESA [Concomitant]

REACTIONS (1)
  - PANCYTOPENIA [None]
